FAERS Safety Report 7435620-3 (Version None)
Quarter: 2011Q2

REPORT INFORMATION
  Report Type: 
  Country: None (occurrence: None)
  Receive Date: 20110425
  Receipt Date: 20110415
  Transmission Date: 20111010
  Serious: Yes (Other)
  Sender: FDA-Public Use
  Company Number: US-ASTRAZENECA-2011SE22006

PATIENT
  Age: 84 Year
  Sex: Male
  Weight: 99.8 kg

DRUGS (6)
  1. DOXASOCIN [Concomitant]
     Indication: PROSTATOMEGALY
  2. ADVAIR DISKUS 100/50 [Concomitant]
  3. THYROID MEDICATION [Concomitant]
  4. IRESSA [Suspect]
     Indication: NON-SMALL CELL LUNG CANCER
     Route: 048
     Dates: start: 20020101
  5. ALBUTEROL [Concomitant]
  6. FUOSAMIDE [Concomitant]

REACTIONS (6)
  - PANCREATIC ATROPHY [None]
  - SPUTUM DISCOLOURED [None]
  - PAIN IN EXTREMITY [None]
  - OEDEMA PERIPHERAL [None]
  - BLOOD GLUCOSE INCREASED [None]
  - SPUTUM INCREASED [None]
